FAERS Safety Report 6953952-X (Version None)
Quarter: 2010Q3

REPORT INFORMATION
  Report Type: 
  Country: None (occurrence: None)
  Receive Date: 20100829
  Receipt Date: 20100623
  Transmission Date: 20110219
  Serious: No
  Sender: FDA-Public Use
  Company Number: US-ABBOTT-10P-163-0654668-00

PATIENT
  Age: 62 Year
  Sex: Female
  Weight: 83.536 kg

DRUGS (11)
  1. NIASPAN [Suspect]
     Indication: ARTERIOSCLEROSIS
     Dosage: EVERY NIGHT
     Dates: start: 20070101
  2. NIASPAN [Suspect]
     Indication: HIGH DENSITY LIPOPROTEIN DECREASED
  3. NIASPAN [Suspect]
     Dates: end: 20100622
  4. LOVAZA [Concomitant]
     Indication: PRODUCT USED FOR UNKNOWN INDICATION
  5. METOPROLOL [Concomitant]
     Indication: HYPERTENSION
  6. AMLODIPINE [Concomitant]
     Indication: HYPERTENSION
  7. ISOSORBIDE [Concomitant]
     Indication: ANGINA UNSTABLE
  8. BENICAR [Concomitant]
     Indication: HYPERTENSION
  9. FEXOFENADINE HCL [Concomitant]
     Indication: HYPERSENSITIVITY
  10. UNKNOWN CREAMS [Concomitant]
     Indication: ACNE
  11. LIPITOR [Concomitant]
     Indication: PRODUCT USED FOR UNKNOWN INDICATION

REACTIONS (4)
  - FEELING HOT [None]
  - FORMICATION [None]
  - PARAESTHESIA [None]
  - RASH [None]
